FAERS Safety Report 5763559-8 (Version None)
Quarter: 2008Q2

REPORT INFORMATION
  Report Type: 
  Country: None (occurrence: None)
  Receive Date: 20080610
  Receipt Date: 20080428
  Transmission Date: 20081010
  Serious: Yes (Other)
  Sender: FDA-Public Use
  Company Number: JP-JNJFOC-20080601441

PATIENT

DRUGS (5)
  1. RISPERDAL [Suspect]
     Indication: RESTLESSNESS
     Route: 048
  2. BETAMETHASONE [Concomitant]
     Route: 048
  3. MORPHINE [Concomitant]
     Route: 048
  4. CLOTIAZEPAM [Concomitant]
  5. ETIZOLAM [Concomitant]

REACTIONS (5)
  - BLOOD PRESSURE DECREASED [None]
  - BLOOD UREA INCREASED [None]
  - CARDIAC FAILURE [None]
  - DEPRESSED LEVEL OF CONSCIOUSNESS [None]
  - PYREXIA [None]
